FAERS Safety Report 4311628-1 (Version None)
Quarter: 2004Q1

REPORT INFORMATION
  Report Type: 
  Country: None (occurrence: None)
  Receive Date: 20040302
  Receipt Date: 20031118
  Transmission Date: 20041129
  Serious: No
  Sender: FDA-Public Use
  Company Number: 200328577BWH

PATIENT
  Age: 77 Year
  Sex: Male
  Weight: 72.5755 kg

DRUGS (10)
  1. LEVITRA [Suspect]
     Indication: ERECTILE DYSFUNCTION
     Dosage: 5 MG, TOTAL DAILY, ORAL, 2.5 MG, TOTAL DAILY, ORAL
     Route: 048
     Dates: start: 20031101
  2. LEVITRA [Suspect]
     Indication: ERECTILE DYSFUNCTION
     Dosage: 5 MG, TOTAL DAILY, ORAL, 2.5 MG, TOTAL DAILY, ORAL
     Route: 048
     Dates: start: 20031117
  3. CARDURA [Concomitant]
  4. ZIAC [Concomitant]
  5. ZINC SULFATE [Concomitant]
  6. CALCIUM [Concomitant]
  7. MAGNESIUM [Concomitant]
  8. VITAMIN E [Concomitant]
  9. MULTIVAMIN [Concomitant]
  10. SAW PALMETTO [Concomitant]

REACTIONS (2)
  - MALAISE [None]
  - TENSION [None]
